FAERS Safety Report 23803302 (Version 2)
Quarter: 2024Q2

REPORT INFORMATION
  Report Type: Report from Study
  Country: US (occurrence: None)
  Receive Date: 20240501
  Receipt Date: 20240506
  Transmission Date: 20240716
  Serious: Yes (Life-Threatening, Hospitalization, Other)
  Sender: FDA-Public Use
  Company Number: 2024A075210

PATIENT
  Age: 75 Year
  Sex: Male

DRUGS (9)
  1. TAGRISSO [Suspect]
     Active Substance: OSIMERTINIB
     Indication: Lung neoplasm malignant
     Route: 048
     Dates: start: 20240103, end: 20240306
  2. ELIQUIS [Concomitant]
     Active Substance: APIXABAN
  3. SULFAMETHOXAZOLE\TRIMETHOPRIM [Concomitant]
     Active Substance: SULFAMETHOXAZOLE\TRIMETHOPRIM
  4. DELTASONE [Concomitant]
     Active Substance: PREDNISONE
  5. PROTONIX [Concomitant]
     Active Substance: PANTOPRAZOLE SODIUM
  6. ZOCOR [Concomitant]
     Active Substance: SIMVASTATIN
  7. LISINOPRIL;HYDROCHLOROTHIAZIDE [Concomitant]
  8. TOPROL XL [Concomitant]
     Active Substance: METOPROLOL SUCCINATE
  9. ZYLOPRIM [Concomitant]
     Active Substance: ALLOPURINOL

REACTIONS (17)
  - Pneumonitis [Recovering/Resolving]
  - Oxygen saturation decreased [Recovering/Resolving]
  - Acute respiratory failure [Unknown]
  - Deep vein thrombosis [Unknown]
  - Lung opacity [Unknown]
  - Pleural effusion [Unknown]
  - Blood glucose increased [Unknown]
  - Anion gap decreased [Unknown]
  - White blood cell count increased [Unknown]
  - Haemoglobin decreased [Unknown]
  - Activated partial thromboplastin time prolonged [Unknown]
  - Carbon dioxide decreased [Unknown]
  - Cholelithiasis [Unknown]
  - Monocyte count decreased [Unknown]
  - Neutrophil count increased [Unknown]
  - Haematocrit decreased [Unknown]
  - Lymphocyte count decreased [Unknown]

NARRATIVE: CASE EVENT DATE: 20240301
